FAERS Safety Report 24531433 (Version 2)
Quarter: 2025Q3

REPORT INFORMATION
  Report Type: Report from Study
  Country: US (occurrence: US)
  Receive Date: 20241022
  Receipt Date: 20250803
  Transmission Date: 20251021
  Serious: Yes (Other)
  Sender: ALEXION PHARMACEUTICALS
  Company Number: US-AstraZeneca-CH-00719958A

PATIENT
  Sex: Male

DRUGS (1)
  1. CALQUENCE [Suspect]
     Active Substance: ACALABRUTINIB
     Indication: Chronic lymphocytic leukaemia
     Dosage: 100 MILLIGRAM, QD
     Dates: start: 202408

REACTIONS (8)
  - Liver function test increased [Unknown]
  - Product dose omission issue [Unknown]
  - White blood cell count increased [Unknown]
  - Respiratory tract congestion [Unknown]
  - Blister [Unknown]
  - Dizziness [Unknown]
  - Viral infection [Unknown]
  - Presyncope [Unknown]
